FAERS Safety Report 8519683-X (Version None)
Quarter: 2012Q3

REPORT INFORMATION
  Report Type: 
  Country: None (occurrence: None)
  Receive Date: 20120719
  Receipt Date: 20120709
  Transmission Date: 20120928
  Serious: Yes (Other)
  Sender: FDA-Public Use
  Company Number: NL-AMGEN-NLDSP2012043171

PATIENT
  Age: 60 Year
  Sex: Male

DRUGS (4)
  1. ANTIHYPERTENSIVES [Concomitant]
     Dosage: UNK
  2. ENBREL [Suspect]
     Indication: PSORIATIC ARTHROPATHY
     Dosage: 50 MG, WEEKLY
     Dates: start: 20090101
  3. OMEPRAZOLE [Concomitant]
     Dosage: UNK
  4. PROSTAMED                          /01018101/ [Concomitant]
     Dosage: UNK

REACTIONS (1)
  - PSORIATIC ARTHROPATHY [None]
